FAERS Safety Report 6143136-X (Version None)
Quarter: 2009Q2

REPORT INFORMATION
  Report Type: 
  Country: None (occurrence: None)
  Receive Date: 20090401
  Receipt Date: 20090323
  Transmission Date: 20091009
  Serious: Yes (Other)
  Sender: FDA-Public Use
  Company Number: 2009AP001063

PATIENT
  Age: 72 Year
  Sex: Female

DRUGS (8)
  1. CALCITONIN SALMON [Suspect]
     Indication: BONE DISORDER
     Dosage: 1 SPR; QD; NAS
     Route: 045
     Dates: start: 20090310, end: 20090312
  2. NIFEDIPINE [Concomitant]
  3. ATENOLOL [Concomitant]
  4. COLESEVELAM [Concomitant]
  5. HYDROCHLORIDE [Concomitant]
  6. LORAZEPAM [Concomitant]
  7. ACETYLSALICYLIC ACID SRT [Concomitant]
  8. MULTI-VITAMINS [Concomitant]

REACTIONS (3)
  - OROPHARYNGEAL PAIN [None]
  - THROAT IRRITATION [None]
  - THROAT TIGHTNESS [None]
